FAERS Safety Report 6720849-X (Version None)
Quarter: 2010Q2

REPORT INFORMATION
  Report Type: 
  Country: None (occurrence: None)
  Receive Date: 20100512
  Receipt Date: 20100504
  Transmission Date: 20101027
  Serious: No
  Sender: FDA-Public Use
  Company Number: US-BIOGENIDEC-2010BI015343

PATIENT
  Age: 33 Year
  Sex: Female

DRUGS (4)
  1. TYSABRI [Suspect]
     Indication: MULTIPLE SCLEROSIS
     Route: 042
     Dates: start: 20091209
  2. FE [Concomitant]
  3. NASAL SPRAY [NOS] [Concomitant]
  4. EAR DROPS [NOS] [Concomitant]

REACTIONS (2)
  - MUSCLE SPASMS [None]
  - SOMNOLENCE [None]
